FAERS Safety Report 5940752-2 (Version None)
Quarter: 2008Q4

REPORT INFORMATION
  Report Type: 
  Country: None (occurrence: None)
  Receive Date: 20081103
  Receipt Date: 20081103
  Transmission Date: 20090506
  Serious: Yes (Hospitalization)
  Sender: FDA-Public Use
  Company Number: None

PATIENT
  Age: 87 Year
  Sex: Male
  Weight: 92 kg

DRUGS (2)
  1. CEFTRIAXONE [Suspect]
     Indication: CELLULITIS
     Dosage: 2 GM ONCE IV
     Route: 042
     Dates: start: 20081006, end: 20081006
  2. AMOXICILLIN + CLAVULANATE POTASSIUM [Suspect]
     Indication: CELLULITIS
     Dosage: 1 TAB BID PO
     Route: 048
     Dates: start: 20081006, end: 20081010

REACTIONS (7)
  - FLUID OVERLOAD [None]
  - GAIT DISTURBANCE [None]
  - HYPERSOMNIA [None]
  - LETHARGY [None]
  - RENAL FAILURE ACUTE [None]
  - RESPIRATORY FAILURE [None]
  - URINE OUTPUT DECREASED [None]
